FAERS Safety Report 11381222 (Version 1)
Quarter: 2015Q3

REPORT INFORMATION
  Report Type: Spontaneous
  Country: US (occurrence: US)
  Receive Date: 20150814
  Receipt Date: 20150814
  Transmission Date: 20151125
  Serious: No
  Sender: FDA-Public Use
  Company Number: US-JNJFOC-20150414233

PATIENT
  Age: 55 Year
  Sex: Female

DRUGS (1)
  1. FENTANYL TRANSDERMAL SYSTEM [Suspect]
     Active Substance: FENTANYL
     Indication: PAIN
     Route: 062
     Dates: start: 20150414

REACTIONS (6)
  - Migraine [Recovered/Resolved]
  - Pain [Unknown]
  - Feeling jittery [Recovered/Resolved]
  - Tremor [Recovered/Resolved]
  - Nervousness [Recovered/Resolved]
  - Headache [Recovered/Resolved]

NARRATIVE: CASE EVENT DATE: 20150414
